FAERS Safety Report 4338382-1 (Version None)
Quarter: 2004Q2

REPORT INFORMATION
  Report Type: 
  Country: None (occurrence: None)
  Receive Date: 20040404
  Receipt Date: 20040329
  Transmission Date: 20050107
  Serious: Yes (Disabling)
  Sender: FDA-Public Use
  Company Number: 2004GB00735

PATIENT
  Age: 64 Year
  Sex: Male
  Weight: 79 kg

DRUGS (4)
  1. CRESTOR [Suspect]
     Indication: HYPERCHOLESTEROLAEMIA
     Dosage: 10 MG DAILY PO
     Route: 048
     Dates: start: 20030915, end: 20040313
  2. WARFARIN SODIUM [Concomitant]
  3. ATENOLOL [Concomitant]
  4. HYDROXOCOBALAMIN [Concomitant]

REACTIONS (2)
  - RETINAL ARTERY THROMBOSIS [None]
  - SCOTOMA [None]
